FAERS Safety Report 18567132 (Version 1)
Quarter: 2020Q4

REPORT INFORMATION
  Report Type: Spontaneous
  Country: BR (occurrence: BR)
  Receive Date: 20201201
  Receipt Date: 20201201
  Transmission Date: 20210114
  Serious: Yes (Death, Other)
  Sender: FDA-Public Use
  Company Number: BR-BAYER-2020-258015

PATIENT
  Age: 57 Year
  Sex: Male

DRUGS (1)
  1. CHLOROQUINE. [Suspect]
     Active Substance: CHLOROQUINE
     Indication: COVID-19

REACTIONS (1)
  - Hypotension [None]

NARRATIVE: CASE EVENT DATE: 20200404
